FAERS Safety Report 7711685-6 (Version None)
Quarter: 2011Q3

REPORT INFORMATION
  Report Type: 
  Country: None (occurrence: None)
  Receive Date: 20110826
  Receipt Date: 20110822
  Transmission Date: 20111222
  Serious: Yes (Death)
  Sender: FDA-Public Use
  Company Number: US-JNJFOC-20110610230

PATIENT
  Sex: Male
  Weight: 83.92 kg

DRUGS (4)
  1. ABILIFY [Concomitant]
     Indication: SCHIZOAFFECTIVE DISORDER
     Route: 048
  2. INVEGA SUSTENNA [Suspect]
     Indication: SCHIZOAFFECTIVE DISORDER
     Route: 030
     Dates: start: 20110517
  3. INVEGA SUSTENNA [Suspect]
     Route: 030
     Dates: start: 20110322
  4. INVEGA SUSTENNA [Suspect]
     Route: 030
     Dates: start: 20110419

REACTIONS (1)
  - COMPLETED SUICIDE [None]
